FAERS Safety Report 12101624 (Version 1)
Quarter: 2016Q1

REPORT INFORMATION
  Report Type: Spontaneous
  Country: US (occurrence: US)
  Receive Date: 20160222
  Receipt Date: 20160222
  Transmission Date: 20160526
  Serious: Yes (Hospitalization)
  Sender: FDA-Public Use
  Company Number: US-JUBILANT CADISTA PHARMACEUTICALS-2016JUB00048

PATIENT
  Age: 64 Year
  Sex: Male
  Weight: 92.97 kg

DRUGS (5)
  1. TERAZOSIN [Suspect]
     Active Substance: TERAZOSIN\TERAZOSIN HYDROCHLORIDE
     Dosage: UNK
     Dates: start: 201601
  2. VERAPAMIL ER [Concomitant]
     Active Substance: VERAPAMIL HYDROCHLORIDE
     Dosage: 240 MG, 2X/DAY
  3. TERAZOSIN [Suspect]
     Active Substance: TERAZOSIN\TERAZOSIN HYDROCHLORIDE
     Indication: BENIGN PROSTATIC HYPERPLASIA
     Dosage: 1 TABLETS, 1X/DAY
     Route: 048
     Dates: start: 2009, end: 201511
  4. LOVASTATIN HCL [Concomitant]
     Dosage: 40 MG, 1X/DAY
  5. FLUOXETINE [Concomitant]
     Active Substance: FLUOXETINE HYDROCHLORIDE
     Dosage: 40 MG, AS NEEDED

REACTIONS (8)
  - Malaise [Recovered/Resolved]
  - Presyncope [Recovered/Resolved]
  - Insomnia [Not Recovered/Not Resolved]
  - Blood pressure decreased [Recovered/Resolved]
  - Myocardial infarction [Recovered/Resolved]
  - Drug dose omission [Recovered/Resolved]
  - Respiratory tract congestion [Recovered/Resolved]
  - Pollakiuria [Not Recovered/Not Resolved]

NARRATIVE: CASE EVENT DATE: 201512
